FAERS Safety Report 9745471 (Version 2)
Quarter: 2014Q1

REPORT INFORMATION
  Report Type: Spontaneous
  Country: JP (occurrence: JP)
  Receive Date: 20131211
  Receipt Date: 20140205
  Transmission Date: 20141002
  Serious: Yes (Other)
  Sender: FDA-Public Use
  Company Number: JP-PFIZER INC-2013346897

PATIENT
  Age: 70 Year
  Sex: Male

DRUGS (2)
  1. SOLU-CORTEF [Suspect]
     Indication: ACUTE RESPIRATORY DISTRESS SYNDROME
     Dosage: 300 MG, DAILY
     Route: 042
  2. SOLU-CORTEF [Suspect]
     Dosage: 100 MG, DAILY

REACTIONS (1)
  - Hepatitis B [Unknown]
